FAERS Safety Report 25974427 (Version 1)
Quarter: 2025Q4

REPORT INFORMATION
  Report Type: Spontaneous
  Country: US (occurrence: US)
  Receive Date: 20251029
  Receipt Date: 20251029
  Transmission Date: 20260117
  Serious: No
  Sender: Kenvue
  Company Number: US-KENVUE-20251005327

PATIENT
  Age: 50 Year
  Sex: Male

DRUGS (8)
  1. IBUPROFEN [Suspect]
     Active Substance: IBUPROFEN
     Indication: Pain
     Dosage: SOMETIMES
     Route: 065
     Dates: start: 2025
  2. AMBRISENTAN [Concomitant]
     Active Substance: AMBRISENTAN
     Indication: Pulmonary arterial hypertension
     Dosage: 5 MILLIGRAM, ONCE A DAY
     Route: 048
     Dates: start: 202508
  3. AMBRISENTAN [Concomitant]
     Active Substance: AMBRISENTAN
     Dosage: 10 MILLIGRAM, ONCE A DAY
     Route: 048
     Dates: start: 202508
  4. UPTRAVI [Concomitant]
     Active Substance: SELEXIPAG
     Indication: Pulmonary arterial hypertension
     Dosage: 400 UG BY MOUTH TWICE DAILY
     Route: 048
     Dates: start: 20250826
  5. UPTRAVI [Concomitant]
     Active Substance: SELEXIPAG
     Dosage: 600 MCG BY MOUTH TWICE DAILY
     Route: 048
     Dates: start: 202508
  6. UPTRAVI [Concomitant]
     Active Substance: SELEXIPAG
     Dosage: 800 MCG BY MOUTH TWICE DAILY
     Route: 048
     Dates: start: 202508
  7. ADCIRCA [Concomitant]
     Active Substance: TADALAFIL
     Indication: Pulmonary arterial hypertension
     Dosage: 20 MG BY MOUTH ONCE DAILY FOR 2 WEEKS
     Route: 048
     Dates: start: 202509
  8. ADCIRCA [Concomitant]
     Active Substance: TADALAFIL
     Dosage: 40 MG BY MOUTH ONCE DAILY FOR 2 WEEKS
     Route: 048
     Dates: start: 202509

REACTIONS (1)
  - Off label use [Unknown]

NARRATIVE: CASE EVENT DATE: 20250101
